FAERS Safety Report 7995378-6 (Version None)
Quarter: 2011Q4

REPORT INFORMATION
  Report Type: 
  Country: None (occurrence: None)
  Receive Date: 20111220
  Receipt Date: 20111213
  Transmission Date: 20120403
  Serious: Yes (Other)
  Sender: FDA-Public Use
  Company Number: DE-BRISTOL-MYERS SQUIBB COMPANY-16291122

PATIENT
  Age: 26 Year
  Sex: Male

DRUGS (1)
  1. ABILIFY [Suspect]
     Indication: SCHIZOPHRENIA, PARANOID TYPE
     Dosage: 1DF:25 UNIT NOS
     Route: 048
     Dates: start: 20110606, end: 20110818

REACTIONS (3)
  - MOBILITY DECREASED [None]
  - GAIT DISTURBANCE [None]
  - CHILLS [None]
